FAERS Safety Report 8300751-2 (Version None)
Quarter: 2012Q2

REPORT INFORMATION
  Report Type: 
  Country: None (occurrence: None)
  Receive Date: 20120420
  Receipt Date: 20120416
  Transmission Date: 20120825
  Serious: No
  Sender: FDA-Public Use
  Company Number: PHHY2010US84823

PATIENT
  Sex: Male

DRUGS (9)
  1. VERAPAMIL [Concomitant]
  2. LOSARTAN POTASSIUM [Concomitant]
  3. TASIGNA [Suspect]
     Indication: CHRONIC MYELOID LEUKAEMIA
     Dosage: 300 MG, BID
     Dates: start: 20101130
  4. CALCIUM [Concomitant]
  5. EXCEDRIN (MIGRAINE) [Concomitant]
  6. TEKTURNA [Concomitant]
  7. FLOMAX [Concomitant]
  8. VITAMIN D [Concomitant]
  9. VIAGRA [Concomitant]

REACTIONS (4)
  - OESOPHAGEAL IRRITATION [None]
  - HEADACHE [None]
  - THROAT IRRITATION [None]
  - RASH [None]
